FAERS Safety Report 24620295 (Version 1)
Quarter: 2024Q4

REPORT INFORMATION
  Report Type: Spontaneous
  Country: US (occurrence: US)
  Receive Date: 20241114
  Receipt Date: 20241114
  Transmission Date: 20250114
  Serious: No
  Sender: CURRAX PHARMACEUTICALS
  Company Number: CRAX2400840

PATIENT
  Sex: Female

DRUGS (4)
  1. CONTRAVE [Suspect]
     Active Substance: BUPROPION HYDROCHLORIDE\NALTREXONE HYDROCHLORIDE
     Indication: Product used for unknown indication
     Dosage: STRENGTH: 8/90 MG, UNKNOWN DOSE AND FREQUENCY
     Route: 048
     Dates: start: 202404, end: 2024
  2. LISINOPRIL [Concomitant]
     Active Substance: LISINOPRIL
     Indication: Product used for unknown indication
     Dosage: UNK
  3. INOSITOL [Concomitant]
     Active Substance: INOSITOL
     Indication: Product used for unknown indication
     Dosage: UNK
  4. BERBERINE [Concomitant]
     Active Substance: BERBERINE
     Indication: Product used for unknown indication
     Dosage: UNK

REACTIONS (1)
  - Drug effect less than expected [Unknown]

NARRATIVE: CASE EVENT DATE: 20240101
